FAERS Safety Report 10199660 (Version 1)
Quarter: 2014Q2

REPORT INFORMATION
  Report Type: Spontaneous
  Country: US (occurrence: RU)
  Receive Date: 20140527
  Receipt Date: 20140527
  Transmission Date: 20141212
  Serious: Yes (Other)
  Sender: FDA-Public Use
  Company Number: RU-ALLERGAN-1410225US

PATIENT
  Age: 34 Year
  Sex: Female

DRUGS (2)
  1. BOTOX [Suspect]
     Indication: MIGRAINE
     Dosage: 70 UNITS, SINGLE
     Route: 030
     Dates: start: 20140127, end: 20140127
  2. BOTOX [Suspect]
     Dosage: UNK
     Dates: start: 201308, end: 201308

REACTIONS (6)
  - Transient ischaemic attack [Unknown]
  - Diplegia [Unknown]
  - Hypoaesthesia [Unknown]
  - Visual impairment [Unknown]
  - Dyspnoea [Unknown]
  - Migraine [Unknown]
